FAERS Safety Report 12276238 (Version 1)
Quarter: 2016Q2

REPORT INFORMATION
  Report Type: Spontaneous
  Country: FR (occurrence: FR)
  Receive Date: 20160418
  Receipt Date: 20160418
  Transmission Date: 20160815
  Serious: Yes (Hospitalization)
  Sender: FDA-Public Use
  Company Number: FR-ROCHE-1742932

PATIENT
  Age: 68 Year
  Sex: Female

DRUGS (2)
  1. AVASTIN [Suspect]
     Active Substance: BEVACIZUMAB
     Dosage: SECOND ADMINISTRATION
     Route: 065
     Dates: start: 20160317
  2. AVASTIN [Suspect]
     Active Substance: BEVACIZUMAB
     Indication: BREAST CANCER
     Route: 065
     Dates: start: 20160128

REACTIONS (1)
  - Progressive multifocal leukoencephalopathy [Recovered/Resolved]
